FAERS Safety Report 10855584 (Version 4)
Quarter: 2015Q3

REPORT INFORMATION
  Report Type: Spontaneous
  Country: FI (occurrence: FI)
  Receive Date: 20150223
  Receipt Date: 20150914
  Transmission Date: 20151125
  Serious: Yes (Other)
  Sender: FDA-Public Use
  Company Number: FI-AMGEN-FINSP2015004235

PATIENT
  Age: 70 Year
  Sex: Female

DRUGS (11)
  1. TRAMADOL. [Concomitant]
     Active Substance: TRAMADOL
  2. PRIMASPAN [Concomitant]
  3. ORMOX [Concomitant]
  4. PANACOD [Concomitant]
     Active Substance: ACETAMINOPHEN\CODEINE PHOSPHATE
  5. BUPRENORPHINE. [Concomitant]
     Active Substance: BUPRENORPHINE
  6. DULOXETINE. [Concomitant]
     Active Substance: DULOXETINE
  7. SIMVASTATIN. [Concomitant]
     Active Substance: SIMVASTATIN
  8. DICLOFENAC [Concomitant]
     Active Substance: DICLOFENAC
  9. METOHEXAL                          /00376902/ [Concomitant]
     Active Substance: METOPROLOL SUCCINATE
  10. METFORMIN [Concomitant]
     Active Substance: METFORMIN HYDROCHLORIDE
  11. PROLIA [Suspect]
     Active Substance: DENOSUMAB
     Indication: OSTEOPOROSIS POSTMENOPAUSAL
     Dosage: 60 MG, Q6MO
     Route: 030
     Dates: start: 201410

REACTIONS (7)
  - Dental fistula [Not Recovered/Not Resolved]
  - Arthralgia [Not Recovered/Not Resolved]
  - Pain in extremity [Not Recovered/Not Resolved]
  - Osteonecrosis of jaw [Not Recovered/Not Resolved]
  - Dental caries [Not Recovered/Not Resolved]
  - Sciatica [Not Recovered/Not Resolved]
  - Impaired healing [Not Recovered/Not Resolved]

NARRATIVE: CASE EVENT DATE: 20141114
